FAERS Safety Report 18190445 (Version 1)
Quarter: 2020Q3

REPORT INFORMATION
  Report Type: Spontaneous
  Country: MX (occurrence: MX)
  Receive Date: 20200824
  Receipt Date: 20200824
  Transmission Date: 20201103
  Serious: Yes (Other)
  Sender: FDA-Public Use
  Company Number: MX-009507513-2008MEX011206

PATIENT
  Age: 34 Year
  Sex: Female

DRUGS (1)
  1. IMPLANON [Suspect]
     Active Substance: ETONOGESTREL
     Dosage: 1 IMPLANT
     Route: 059
     Dates: start: 2011

REACTIONS (4)
  - Pregnancy with implant contraceptive [Unknown]
  - Incorrect product administration duration [Unknown]
  - Unintended pregnancy [Unknown]
  - Complication associated with device [Not Recovered/Not Resolved]
